FAERS Safety Report 24614807 (Version 3)
Quarter: 2025Q4

REPORT INFORMATION
  Report Type: Report from Study
  Country: US (occurrence: US)
  Receive Date: 20241113
  Receipt Date: 20251219
  Transmission Date: 20260118
  Serious: Yes (Other)
  Sender: UCB
  Company Number: US-UCBSA-2024058057

PATIENT
  Age: 31 Year
  Weight: 77.1 kg

DRUGS (2)
  1. FENFLURAMINE [Suspect]
     Active Substance: FENFLURAMINE
     Indication: Product used for unknown indication
     Dosage: 26.4 MILLIGRAM PER DAY
  2. FENFLURAMINE [Suspect]
     Active Substance: FENFLURAMINE
     Dosage: 6 MG/KG/DAY TO A TOTAL DOSE OF 12 MG/DAY

REACTIONS (1)
  - Tricuspid valve incompetence [Unknown]
